FAERS Safety Report 8968244 (Version 3)
Quarter: 2018Q4

REPORT INFORMATION
  Report Type: Report from Study
  Country: FR (occurrence: FR)
  Receive Date: 20121217
  Receipt Date: 20181126
  Transmission Date: 20190205
  Serious: Yes (Life-Threatening, Hospitalization, Other)
  Sender: FDA-Public Use
  Company Number: FR-ROCHE-GNE254113

PATIENT
  Age: 79 Year
  Sex: Female
  Weight: 56 kg

DRUGS (14)
  1. METHOTREXATE. [Suspect]
     Active Substance: METHOTREXATE
     Indication: PRODUCT USED FOR UNKNOWN INDICATION
     Route: 065
  2. PARACETAMOL [Concomitant]
     Active Substance: ACETAMINOPHEN
     Indication: PRODUCT USED FOR UNKNOWN INDICATION
     Route: 065
     Dates: start: 20071025
  3. RITUXIMAB. [Suspect]
     Active Substance: RITUXIMAB
     Dosage: D15
     Route: 041
     Dates: start: 20070313
  4. TETRAZEPAM [Concomitant]
     Active Substance: TETRAZEPAM
     Indication: PRODUCT USED FOR UNKNOWN INDICATION
  5. SPIRONOLACTONE. [Concomitant]
     Active Substance: SPIRONOLACTONE
     Indication: PRODUCT USED FOR UNKNOWN INDICATION
     Dosage: DOSING REGIMEN: ONE DOSE PER DAY
     Route: 065
  6. FLUINDIONE [Concomitant]
     Active Substance: FLUINDIONE
     Indication: PRODUCT USED FOR UNKNOWN INDICATION
  7. ORENCIA [Concomitant]
     Active Substance: ABATACEPT
     Route: 065
     Dates: start: 20100423
  8. RITUXIMAB. [Suspect]
     Active Substance: RITUXIMAB
     Indication: RHEUMATOID ARTHRITIS
     Dosage: D1
     Route: 041
     Dates: start: 20070226
  9. SPECIAFOLDINE [Concomitant]
     Active Substance: FOLIC ACID
     Indication: PRODUCT USED FOR UNKNOWN INDICATION
     Dosage: DOSAGE REGIMEN: THREE DOSES PER WEEK
     Route: 065
  10. KALEORID [Concomitant]
     Active Substance: POTASSIUM CHLORIDE
     Indication: PRODUCT USED FOR UNKNOWN INDICATION
  11. CORDARONE [Concomitant]
     Active Substance: AMIODARONE HYDROCHLORIDE
     Indication: PRODUCT USED FOR UNKNOWN INDICATION
     Dosage: IN EVENING EXCEPT THE WEEKEND
     Route: 065
  12. OMEPRAZOLE. [Concomitant]
     Active Substance: OMEPRAZOLE
     Indication: PRODUCT USED FOR UNKNOWN INDICATION
  13. FORSTEO [Concomitant]
     Active Substance: TERIPARATIDE
     Indication: OSTEOPOROSIS
     Dosage: DOSAGE REGIMEN: ONE DOSE PER DAY
     Route: 065
  14. ATARAX [Concomitant]
     Active Substance: HYDROXYZINE HYDROCHLORIDE
     Indication: PRODUCT USED FOR UNKNOWN INDICATION
     Route: 065
     Dates: start: 20071025

REACTIONS (30)
  - Chalazion [Not Recovered/Not Resolved]
  - Hypophosphataemia [Recovered/Resolved]
  - Diarrhoea [Recovered/Resolved]
  - Bronchitis [Recovered/Resolved]
  - Herpes zoster [Recovered/Resolved]
  - Large intestine perforation [Recovered/Resolved]
  - Oedema [Not Recovered/Not Resolved]
  - Neck pain [Not Recovered/Not Resolved]
  - Back pain [Not Recovered/Not Resolved]
  - Nausea [Unknown]
  - Febrile neutropenia [Recovered/Resolved]
  - Cough [Recovered/Resolved]
  - Arthralgia [Unknown]
  - Lung disorder [Recovered/Resolved]
  - Synovitis [Not Recovered/Not Resolved]
  - Chest pain [Not Recovered/Not Resolved]
  - Peritonitis [Recovered/Resolved]
  - Diarrhoea [Unknown]
  - Dyspnoea [Recovered/Resolved]
  - Interstitial lung disease [Not Recovered/Not Resolved]
  - Abdominal pain [Unknown]
  - Vomiting [Unknown]
  - Pseudomonal sepsis [Recovered/Resolved]
  - Septic shock [Recovered/Resolved]
  - Urinary tract infection [Unknown]
  - Obstruction [Recovered/Resolved]
  - Paraesthesia [Not Recovered/Not Resolved]
  - Gastrointestinal infection [Unknown]
  - Hypercholesterolaemia [Recovered/Resolved]
  - Nasopharyngitis [Recovered/Resolved]

NARRATIVE: CASE EVENT DATE: 20071117
